FAERS Safety Report 18224141 (Version 4)
Quarter: 2020Q3

REPORT INFORMATION
  Report Type: Spontaneous
  Country: US (occurrence: US)
  Receive Date: 20200902
  Receipt Date: 20200928
  Transmission Date: 20201103
  Serious: No
  Sender: FDA-Public Use
  Company Number: US-PFIZER INC-2020337744

PATIENT
  Age: 74 Year
  Sex: Female

DRUGS (2)
  1. IBRANCE [Suspect]
     Active Substance: PALBOCICLIB
     Dosage: 125 MG
     Dates: start: 20200824
  2. IBRANCE [Suspect]
     Active Substance: PALBOCICLIB
     Dosage: 125 MG
     Dates: start: 20200820

REACTIONS (6)
  - Dry throat [Unknown]
  - Dysgeusia [Unknown]
  - Tongue blistering [Unknown]
  - Gingival pain [Unknown]
  - Ageusia [Unknown]
  - Stomatitis [Unknown]

NARRATIVE: CASE EVENT DATE: 2020
